FAERS Safety Report 20035166 (Version 2)
Quarter: 2021Q4

REPORT INFORMATION
  Report Type: Spontaneous
  Country: US (occurrence: US)
  Receive Date: 20211104
  Receipt Date: 20211117
  Transmission Date: 20220303
  Serious: Yes (Death, Hospitalization)
  Sender: FDA-Public Use
  Company Number: US-TEVA-2021-US-1972638

PATIENT
  Age: 59 Year
  Sex: Female

DRUGS (3)
  1. HYDROXYUREA [Suspect]
     Active Substance: HYDROXYUREA
     Indication: Hypereosinophilic syndrome
     Route: 065
  2. IMATINIB [Suspect]
     Active Substance: IMATINIB
     Indication: Hypereosinophilic syndrome
     Route: 065
  3. BENRALIZUMAB [Suspect]
     Active Substance: BENRALIZUMAB
     Indication: Hypereosinophilic syndrome
     Route: 065

REACTIONS (1)
  - Drug ineffective [Fatal]
